FAERS Safety Report 5248816-6 (Version None)
Quarter: 2007Q1

REPORT INFORMATION
  Report Type: 
  Country: None (occurrence: None)
  Receive Date: 20070228
  Receipt Date: 20060221
  Transmission Date: 20070707
  Serious: No
  Sender: FDA-Public Use
  Company Number: US-GLAXOSMITHKLINE-A0594610A

PATIENT
  Age: 9 Year
  Sex: Male

DRUGS (2)
  1. VALTREX [Suspect]
     Indication: DRUG USE FOR UNKNOWN INDICATION
     Dosage: 1G TWICE PER DAY
     Route: 048
  2. LASER THERAPY [Concomitant]

REACTIONS (2)
  - DRUG INEFFECTIVE [None]
  - OVERDOSE [None]
